FAERS Safety Report 19720020 (Version 1)
Quarter: 2021Q3

REPORT INFORMATION
  Report Type: Spontaneous
  Country: US (occurrence: US)
  Receive Date: 20210818
  Receipt Date: 20210818
  Transmission Date: 20211014
  Serious: No
  Sender: FDA-Public Use
  Company Number: None

PATIENT
  Age: 56 Year
  Sex: Female
  Weight: 77.11 kg

DRUGS (4)
  1. MULTIVITAMIN [Concomitant]
     Active Substance: VITAMINS
  2. VITAMIN B12 [Concomitant]
     Active Substance: CYANOCOBALAMIN
  3. CALCIUM 500 [Concomitant]
  4. REGEN?COV [Suspect]
     Active Substance: CASIRIVIMAB\IMDEVIMAB
     Indication: COVID-19
     Dosage: ?          QUANTITY:10 ML MILLILITRE(S);?
     Route: 042
     Dates: start: 20210817, end: 20210817

REACTIONS (4)
  - Infusion related reaction [None]
  - Hyperhidrosis [None]
  - Hypersensitivity [None]
  - Chest pain [None]

NARRATIVE: CASE EVENT DATE: 20210817
